FAERS Safety Report 9139716 (Version 1)
Quarter: 2013Q1

REPORT INFORMATION
  Report Type: Spontaneous
  Country: US (occurrence: US)
  Receive Date: 20130305
  Receipt Date: 20130305
  Transmission Date: 20140127
  Serious: No
  Sender: FDA-Public Use
  Company Number: US-ENDO PHARMACEUTICALS INC.-SPLN20120152

PATIENT
  Age: 9 Year
  Sex: Male
  Weight: 34.3 kg

DRUGS (4)
  1. SUPPRELIN LA [Suspect]
     Indication: PRECOCIOUS PUBERTY
     Route: 058
     Dates: start: 20120822
  2. KEPPRA [Concomitant]
     Indication: CONVULSION
     Route: 065
  3. ZONISAMIDE [Concomitant]
     Indication: CONVULSION
     Dosage: 125-150 MG
     Route: 065
  4. DEPAKOTE [Concomitant]
     Indication: CONVULSION
     Dosage: 125-250 MG
     Route: 065

REACTIONS (3)
  - Implant site urticaria [Recovered/Resolved]
  - Implant site rash [Recovered/Resolved]
  - Implant site pruritus [Recovered/Resolved]
